FAERS Safety Report 15776575 (Version 2)
Quarter: 2019Q1

REPORT INFORMATION
  Report Type: Spontaneous
  Country: US (occurrence: US)
  Receive Date: 20181231
  Receipt Date: 20190301
  Transmission Date: 20190417
  Serious: No
  Sender: FDA-Public Use
  Company Number: US-PFIZER INC-2018532773

PATIENT
  Sex: Female

DRUGS (5)
  1. DOCETAXEL. [Suspect]
     Active Substance: DOCETAXEL
     Indication: BREAST CANCER FEMALE
     Dosage: CYCLIC (06 CYCLES, EVERY THREE WEEKS)
     Dates: start: 20140311, end: 20140627
  2. TAXOTERE [Suspect]
     Active Substance: DOCETAXEL
     Indication: BREAST CANCER FEMALE
     Dosage: CYCLIC (06 CYCLES, EVERY THREE WEEKS)
     Dates: start: 20140311, end: 20140627
  3. PARAPLATIN [Concomitant]
     Active Substance: CARBOPLATIN
     Indication: CHEMOTHERAPY
     Dosage: UNK
  4. DOCETAXEL. [Suspect]
     Active Substance: DOCETAXEL
     Indication: BREAST CANCER FEMALE
     Dosage: CYCLIC (06 CYCLES, EVERY THREE WEEKS)
     Dates: start: 20140311, end: 20140627
  5. DOCEFREZ [Suspect]
     Active Substance: DOCETAXEL ANHYDROUS
     Indication: BREAST CANCER FEMALE
     Dosage: CYCLIC (06 CYCLES, EVERY THREE WEEKS)
     Dates: start: 20140311, end: 20140627

REACTIONS (1)
  - Alopecia [Not Recovered/Not Resolved]
